FAERS Safety Report 9229424 (Version 1)
Quarter: 2013Q2

REPORT INFORMATION
  Report Type: Spontaneous
  Country: US (occurrence: US)
  Receive Date: 20130412
  Receipt Date: 20130412
  Transmission Date: 20140414
  Serious: No
  Sender: FDA-Public Use
  Company Number: US-ASTELLAS-2013US000851

PATIENT
  Age: 73 Year
  Sex: Male

DRUGS (5)
  1. PROGRAF [Suspect]
     Indication: LUNG TRANSPLANT
     Dosage: 4 MG, BID
     Route: 065
     Dates: start: 2012
  2. MYCOPHENOLATE MOFETIL [Concomitant]
     Indication: LUNG TRANSPLANT
     Dosage: UNK
     Route: 065
  3. AZITHROMYCIN [Concomitant]
     Indication: LUNG TRANSPLANT
     Dosage: UNK
     Route: 065
  4. OXYGEN [Concomitant]
     Indication: PRODUCT USED FOR UNKNOWN INDICATION
     Dosage: UNK
     Route: 065
  5. UNSPECIFIED MEDICATIONS [Concomitant]
     Indication: PRODUCT USED FOR UNKNOWN INDICATION
     Dosage: UNK
     Route: 065

REACTIONS (2)
  - Off label use [Unknown]
  - Burning sensation [Unknown]
